FAERS Safety Report 7595207-9 (Version None)
Quarter: 2011Q3

REPORT INFORMATION
  Report Type: 
  Country: None (occurrence: None)
  Receive Date: 20110707
  Receipt Date: 20110630
  Transmission Date: 20111222
  Serious: Yes (Other)
  Sender: FDA-Public Use
  Company Number: FR-JNJFOC-20110404080

PATIENT
  Sex: Female
  Weight: 55 kg

DRUGS (3)
  1. TOPIRAMATE [Suspect]
     Route: 048
     Dates: start: 20110309
  2. TOPIRAMATE [Suspect]
     Indication: MIGRAINE PROPHYLAXIS
     Route: 048
     Dates: end: 20110423
  3. TOPIRAMATE [Suspect]
     Route: 048

REACTIONS (8)
  - RESPIRATORY DISORDER [None]
  - DYSGEUSIA [None]
  - FEAR [None]
  - TREMOR [None]
  - TEARFULNESS [None]
  - ANXIETY [None]
  - PARAESTHESIA [None]
  - INSOMNIA [None]
